FAERS Safety Report 6907431-6 (Version None)
Quarter: 2010Q3

REPORT INFORMATION
  Report Type: 
  Country: None (occurrence: None)
  Receive Date: 20100805
  Receipt Date: 20100727
  Transmission Date: 20110219
  Serious: Yes (Hospitalization)
  Sender: FDA-Public Use
  Company Number: US-BIOGENIDEC-2010BI008936

PATIENT
  Age: 50 Year
  Sex: Female

DRUGS (8)
  1. TYSABRI [Suspect]
     Indication: MULTIPLE SCLEROSIS
     Route: 042
     Dates: start: 20080424
  2. NUVIGIL [Concomitant]
     Route: 048
  3. SYNTHROID [Concomitant]
     Route: 048
  4. ZOCOR [Concomitant]
     Route: 048
  5. ZETIA [Concomitant]
     Route: 048
  6. CENTRUM SILVER [Concomitant]
  7. ZANAFLEX [Concomitant]
     Route: 048
  8. ZOLOFT [Concomitant]
     Route: 048

REACTIONS (1)
  - NORMAL PRESSURE HYDROCEPHALUS [None]
